FAERS Safety Report 8601194-4 (Version None)
Quarter: 2012Q3

REPORT INFORMATION
  Report Type: 
  Country: None (occurrence: None)
  Receive Date: 20120817
  Receipt Date: 20120816
  Transmission Date: 20120928
  Serious: Yes (Death, Hospitalization)
  Sender: FDA-Public Use
  Company Number: PHHY2012BR059268

PATIENT
  Sex: Male

DRUGS (3)
  1. EXELON [Suspect]
     Indication: MEMORY IMPAIRMENT
     Dosage: 4.6 MG, DAILY (9 MG/5 CM2)
     Route: 062
  2. EXELON [Suspect]
     Dosage: 13.3 MG DAILY (27 MG/15 CM2)
     Route: 062
  3. EXELON [Suspect]
     Dosage: 9.5 MG, DAILY (18 MG/10 CM2)
     Route: 062

REACTIONS (2)
  - RENAL DISORDER [None]
  - INFARCTION [None]
